FAERS Safety Report 13614929 (Version 1)
Quarter: 2017Q2

REPORT INFORMATION
  Report Type: Report from Study
  Country: CA (occurrence: CA)
  Receive Date: 20170606
  Receipt Date: 20170606
  Transmission Date: 20170830
  Serious: Yes (Other)
  Sender: FDA-Public Use
  Company Number: CA-JNJFOC-20170602046

PATIENT
  Age: 71 Year
  Sex: Male
  Weight: 74.5 kg

DRUGS (1)
  1. SIMPONI [Suspect]
     Active Substance: GOLIMUMAB
     Indication: RHEUMATOID ARTHRITIS
     Route: 058
     Dates: start: 20130513

REACTIONS (1)
  - Gastrointestinal carcinoma [Recovering/Resolving]

NARRATIVE: CASE EVENT DATE: 20161014
